FAERS Safety Report 8457034-X (Version None)
Quarter: 2012Q2

REPORT INFORMATION
  Report Type: 
  Country: None (occurrence: None)
  Receive Date: 20120621
  Receipt Date: 20120619
  Transmission Date: 20120825
  Serious: Yes (Life-Threatening, Hospitalization, Other)
  Sender: FDA-Public Use
  Company Number: AU-PFIZER INC-2012146492

PATIENT
  Sex: Female

DRUGS (1)
  1. ZIPRASIDONE HYDROCHLORIDE [Suspect]
     Indication: POSTPARTUM DEPRESSION
     Dosage: 20 MG, 2X/DAY (MORNING AND NIGHT)

REACTIONS (3)
  - ANAPHYLACTIC REACTION [None]
  - CARDIAC DISORDER [None]
  - TACHYCARDIA [None]
